FAERS Safety Report 15807783 (Version 2)
Quarter: 2019Q3

REPORT INFORMATION
  Report Type: Spontaneous
  Country: GB (occurrence: GB)
  Receive Date: 20190110
  Receipt Date: 20190823
  Transmission Date: 20191004
  Serious: Yes (Death, Other)
  Sender: FDA-Public Use
  Company Number: GB-MYLANLABS-2019M1001879

PATIENT
  Age: 31 Year
  Sex: Male

DRUGS (1)
  1. FENTANYL. [Suspect]
     Active Substance: FENTANYL
     Indication: DEPRESSION
     Dosage: DOSAGE FORM: SOLUTION
     Route: 050

REACTIONS (5)
  - Overdose [Fatal]
  - Syncope [Fatal]
  - Drug dependence [Unknown]
  - Intentional product misuse [Unknown]
  - Drug diversion [Unknown]

NARRATIVE: CASE EVENT DATE: 201512
